FAERS Safety Report 18103742 (Version 1)
Quarter: 2020Q3

REPORT INFORMATION
  Report Type: Spontaneous
  Country: US (occurrence: US)
  Receive Date: 20200803
  Receipt Date: 20200803
  Transmission Date: 20201103
  Serious: Yes (Hospitalization, Other)
  Sender: FDA-Public Use
  Company Number: US-GILEAD-2020-0487467

PATIENT
  Age: 60 Year
  Sex: Female
  Weight: 151 kg

DRUGS (19)
  1. ASA [Concomitant]
     Active Substance: ASPIRIN
     Dosage: UNK
     Route: 065
     Dates: start: 20200716, end: 20200724
  2. DEXAMETHASONE. [Concomitant]
     Active Substance: DEXAMETHASONE
     Dosage: UNK
     Route: 065
     Dates: start: 20200715, end: 20200724
  3. FENTANYL. [Concomitant]
     Active Substance: FENTANYL
     Dosage: UNK
     Route: 042
     Dates: start: 20200718, end: 20200724
  4. EPINEPHRINE. [Concomitant]
     Active Substance: EPINEPHRINE
     Dosage: UNK
     Dates: start: 20200719, end: 20200721
  5. REMDESIVIR. [Suspect]
     Active Substance: REMDESIVIR
     Indication: COVID-19 PNEUMONIA
     Dosage: 100 MG, QD
     Route: 042
     Dates: start: 20200717, end: 20200721
  6. AMLODIPINE [Concomitant]
     Active Substance: AMLODIPINE BESYLATE
     Dosage: UNK
     Route: 065
     Dates: start: 20200715, end: 20200718
  7. AZITHROMYCIN ANHYDROUS. [Concomitant]
     Active Substance: AZITHROMYCIN ANHYDROUS
     Dosage: UNK
     Route: 065
     Dates: start: 20200718, end: 20200720
  8. CEFTRIAXONE. [Concomitant]
     Active Substance: CEFTRIAXONE
     Dosage: UNK
     Route: 065
     Dates: start: 20200718, end: 20200724
  9. FUROSEMIDE. [Concomitant]
     Active Substance: FUROSEMIDE
     Dosage: UNK
     Route: 065
     Dates: start: 20200717, end: 20200723
  10. HEPARIN [Concomitant]
     Active Substance: HEPARIN SODIUM
     Dosage: UNK
     Route: 065
     Dates: start: 20200715, end: 20200724
  11. INSULIN [Concomitant]
     Active Substance: INSULIN NOS
     Dosage: UNK
     Route: 065
     Dates: start: 20200716, end: 20200724
  12. POTASSIUM CHLORIDE. [Concomitant]
     Active Substance: POTASSIUM CHLORIDE
     Dosage: UNK
     Route: 065
     Dates: start: 20200719, end: 20200719
  13. VASOPRESSIN. [Concomitant]
     Active Substance: VASOPRESSIN
     Dosage: UNK
     Route: 065
     Dates: start: 20200721, end: 20200722
  14. ATORVASTATIN [Concomitant]
     Active Substance: ATORVASTATIN
     Dosage: UNK
     Route: 065
     Dates: start: 20200715, end: 20200724
  15. CARVEDILOL. [Concomitant]
     Active Substance: CARVEDILOL
     Dosage: UNK
     Route: 065
     Dates: start: 20200715, end: 20200718
  16. ACETAMINOPHEN. [Concomitant]
     Active Substance: ACETAMINOPHEN
     Dosage: UNK
     Route: 065
     Dates: start: 20200715, end: 20200718
  17. AMIODARONE [Concomitant]
     Active Substance: AMIODARONE
     Dosage: UNK
     Route: 065
     Dates: start: 20200715, end: 20200720
  18. LANSOPRAZOLE. [Concomitant]
     Active Substance: LANSOPRAZOLE
     Dosage: UNK
     Route: 065
     Dates: start: 20200719, end: 20200724
  19. PROPOFOL. [Concomitant]
     Active Substance: PROPOFOL
     Dosage: UNK
     Dates: start: 20200718, end: 20200724

REACTIONS (4)
  - Shock [Not Recovered/Not Resolved]
  - Acute kidney injury [Not Recovered/Not Resolved]
  - Acute kidney injury [Not Recovered/Not Resolved]
  - Blood creatinine increased [Not Recovered/Not Resolved]

NARRATIVE: CASE EVENT DATE: 20200720
